FAERS Safety Report 5964698-9 (Version None)
Quarter: 2008Q4

REPORT INFORMATION
  Report Type: 
  Country: None (occurrence: None)
  Receive Date: 20081125
  Receipt Date: 20081023
  Transmission Date: 20090506
  Serious: No
  Sender: FDA-Public Use
  Company Number: US-AMGEN-KDL311858

PATIENT
  Sex: Male
  Weight: 91 kg

DRUGS (7)
  1. ENBREL [Suspect]
     Indication: PSORIATIC ARTHROPATHY
     Route: 058
     Dates: start: 20080818, end: 20081006
  2. ENBREL [Suspect]
     Indication: PSORIASIS
  3. ELAVIL [Concomitant]
     Route: 048
  4. LISINOPRIL [Concomitant]
  5. IBUPROFEN TABLETS [Concomitant]
  6. FLEXERIL [Concomitant]
  7. RAPTIVA [Concomitant]
     Route: 058
     Dates: start: 20040601

REACTIONS (2)
  - DRUG INEFFECTIVE [None]
  - PSORIASIS [None]
